FAERS Safety Report 7292947-6 (Version None)
Quarter: 2011Q1

REPORT INFORMATION
  Report Type: 
  Country: None (occurrence: None)
  Receive Date: 20110215
  Receipt Date: 20110207
  Transmission Date: 20110831
  Serious: Yes (Hospitalization, Other)
  Sender: FDA-Public Use
  Company Number: US-JNJFOC-20110200002

PATIENT
  Sex: Female
  Weight: 77 kg

DRUGS (5)
  1. REBIF [Suspect]
     Indication: MULTIPLE SCLEROSIS
     Route: 058
  2. OPANA [Concomitant]
     Route: 065
  3. OPANA [Concomitant]
     Indication: PAIN
     Route: 065
  4. ORTHO EVRA [Suspect]
     Indication: CONTRACEPTION
     Route: 062
  5. OPANA ER [Concomitant]
     Indication: PAIN
     Route: 065

REACTIONS (5)
  - PREGNANCY WITH CONTRACEPTIVE PATCH [None]
  - DRUG EXPOSURE DURING PREGNANCY [None]
  - PAIN [None]
  - MEDICATION ERROR [None]
  - PULMONARY EMBOLISM [None]
